FAERS Safety Report 17728490 (Version 2)
Quarter: 2020Q2

REPORT INFORMATION
  Report Type: Report from Study
  Country: CA (occurrence: CA)
  Receive Date: 20200430
  Receipt Date: 20200602
  Transmission Date: 20200714
  Serious: Yes (Death)
  Sender: FDA-Public Use
  Company Number: CA-JNJFOC-20200122479

PATIENT
  Age: 9 Year
  Sex: Female
  Weight: 35.2 kg

DRUGS (5)
  1. REMICADE [Suspect]
     Active Substance: INFLIXIMAB
     Indication: COLITIS ULCERATIVE
     Route: 042
  2. REMICADE [Suspect]
     Active Substance: INFLIXIMAB
     Route: 042
  3. REMICADE [Suspect]
     Active Substance: INFLIXIMAB
     Route: 042
  4. TYLENOL [Concomitant]
     Active Substance: ACETAMINOPHEN
     Indication: PREMEDICATION
     Route: 048
     Dates: start: 20200310, end: 20200310
  5. SOLU-CORTEF [Concomitant]
     Active Substance: HYDROCORTISONE SODIUM SUCCINATE
     Indication: PREMEDICATION
     Dosage: 250 MG/ML
     Route: 042
     Dates: start: 20200310, end: 20200310

REACTIONS (12)
  - Off label use [Unknown]
  - Psoriasis [Unknown]
  - Epilepsy [Fatal]
  - Infusion related reaction [Unknown]
  - Sensory loss [Unknown]
  - Angular cheilitis [Unknown]
  - Fatigue [Unknown]
  - Arthralgia [Unknown]
  - Product use issue [Unknown]
  - Skin lesion [Not Recovered/Not Resolved]
  - Ear infection [Unknown]
  - Vision blurred [Unknown]

NARRATIVE: CASE EVENT DATE: 201912
